FAERS Safety Report 10026791 (Version 1)
Quarter: 2014Q1

REPORT INFORMATION
  Report Type: Spontaneous
  Country: US (occurrence: US)
  Receive Date: 20140321
  Receipt Date: 20140321
  Transmission Date: 20141002
  Serious: Yes (Other)
  Sender: FDA-Public Use
  Company Number: US-ASTRAZENECA-2014SE17890

PATIENT
  Age: 28637 Day
  Sex: Female
  Weight: 84.8 kg

DRUGS (7)
  1. OMEPRAZOLE [Suspect]
     Indication: GASTROOESOPHAGEAL REFLUX DISEASE
     Route: 048
  2. SYMBICORT [Suspect]
     Indication: CHRONIC OBSTRUCTIVE PULMONARY DISEASE
     Dosage: 160/4.5 MCG, 2 PUFFS BID
     Route: 055
     Dates: start: 20140215, end: 201403
  3. SYMBICORT [Suspect]
     Indication: ASTHMA
     Dosage: 160/4.5 MCG, 2 PUFFS BID
     Route: 055
     Dates: start: 20140215, end: 201403
  4. SPIRIVA [Concomitant]
     Indication: CHRONIC OBSTRUCTIVE PULMONARY DISEASE
     Dosage: DAILY
  5. LASIX [Concomitant]
     Indication: LOCAL SWELLING
     Dosage: DAILY
  6. POTASSIUM [Concomitant]
     Indication: DIURETIC THERAPY
     Dosage: DAILY
  7. PROVASTATIN [Concomitant]
     Indication: BLOOD CHOLESTEROL ABNORMAL
     Dosage: DAILY

REACTIONS (12)
  - Blood pressure increased [Unknown]
  - Pneumonia [Unknown]
  - Adverse event [Unknown]
  - Weight decreased [Unknown]
  - Bacterial infection [Unknown]
  - Adverse drug reaction [Unknown]
  - Speech disorder [Unknown]
  - Back pain [Unknown]
  - Fatigue [Unknown]
  - Periorbital oedema [Unknown]
  - Nausea [Unknown]
  - Intentional drug misuse [Unknown]
